FAERS Safety Report 25661330 (Version 2)
Quarter: 2025Q3

REPORT INFORMATION
  Report Type: Spontaneous
  Country: EU (occurrence: EU)
  Receive Date: 20250808
  Receipt Date: 20250827
  Transmission Date: 20251020
  Serious: Yes (Other)
  Sender: PFIZER
  Company Number: None

PATIENT
  Age: 67 Year
  Sex: Female
  Weight: 64 kg

DRUGS (11)
  1. IBRANCE [Suspect]
     Active Substance: PALBOCICLIB
     Indication: Breast cancer metastatic
     Dosage: 100 MG, DAILY DURING 21 DAYS
     Route: 048
     Dates: start: 20240508, end: 20250320
  2. ESOMEPRAZOLE [Concomitant]
     Active Substance: ESOMEPRAZOLE
  3. MIRTAZAPINE [Concomitant]
     Active Substance: MIRTAZAPINE
  4. VENLAFAXINE [Concomitant]
     Active Substance: VENLAFAXINE HYDROCHLORIDE
  5. MEXAZOLAM [Concomitant]
     Active Substance: MEXAZOLAM
  6. TRAZODONE [Concomitant]
     Active Substance: TRAZODONE HYDROCHLORIDE
  7. EBASTINE [Concomitant]
     Active Substance: EBASTINE
  8. MONTELUKAST SODIUM [Concomitant]
     Active Substance: MONTELUKAST SODIUM
  9. MORPHINE [Concomitant]
     Active Substance: MORPHINE
  10. ASPIRIN [Concomitant]
     Active Substance: ASPIRIN
  11. LOFLAZEPATO DE ETILO [Concomitant]

REACTIONS (2)
  - Pneumonitis [Recovered/Resolved]
  - Cell death [Recovering/Resolving]

NARRATIVE: CASE EVENT DATE: 20250320
